FAERS Safety Report 5937304-7 (Version None)
Quarter: 2008Q4

REPORT INFORMATION
  Report Type: 
  Country: None (occurrence: None)
  Receive Date: 20081031
  Receipt Date: 20081020
  Transmission Date: 20090506
  Serious: Yes (Hospitalization)
  Sender: FDA-Public Use
  Company Number: CA-ELI_LILLY_AND_COMPANY-CA200804006721

PATIENT
  Sex: Female

DRUGS (9)
  1. FORTEO [Suspect]
     Indication: OSTEOPOROSIS
     Dosage: 20 UG, DAILY (1/D)
     Route: 058
     Dates: start: 20070524
  2. OMEPRAZOLE [Concomitant]
  3. NOVO-DIFENAC [Concomitant]
     Dosage: 75 MG, 2/D
     Dates: start: 20060307
  4. APO-HYDROXYQUINE [Concomitant]
  5. METHOTREXATE [Concomitant]
     Dosage: 15 MG, WEEKLY (1/W)
     Dates: start: 20060307
  6. METHOTREXATE [Concomitant]
     Dosage: 20 MG, WEEKLY (1/W)
     Dates: end: 20080428
  7. METHOTREXATE [Concomitant]
     Dosage: 15 MG, WEEKLY (1/W)
     Dates: start: 20080429
  8. CALCIUM WITH VITAMIN D /00944201/ [Concomitant]
  9. OXYCOCET [Concomitant]
     Dosage: UNK, UNK
     Dates: start: 20060101

REACTIONS (2)
  - CROHN'S DISEASE [None]
  - SMALL INTESTINAL OBSTRUCTION [None]
